FAERS Safety Report 7821235-1 (Version None)
Quarter: 2011Q4

REPORT INFORMATION
  Report Type: 
  Country: None (occurrence: None)
  Receive Date: 20111018
  Receipt Date: 20111005
  Transmission Date: 20120403
  Serious: Yes (Life-Threatening)
  Sender: FDA-Public Use
  Company Number: FR-SANOFI-AVENTIS-2011SA065094

PATIENT
  Age: 1 Day
  Sex: Female
  Weight: 1.1 kg

DRUGS (3)
  1. CYCLOPHOSPHAMIDE [Suspect]
     Route: 064
     Dates: start: 20110726, end: 20110827
  2. DOXORUBICIN HCL [Suspect]
     Route: 064
     Dates: start: 20110726, end: 20110827
  3. RIFAMPIN AND ISONIAZID [Suspect]
     Route: 064
     Dates: start: 20110701, end: 20110915

REACTIONS (2)
  - ANAEMIA [None]
  - PREMATURE BABY [None]
